FAERS Safety Report 7298725-6 (Version None)
Quarter: 2011Q1

REPORT INFORMATION
  Report Type: 
  Country: None (occurrence: None)
  Receive Date: 20110209
  Receipt Date: 20110124
  Transmission Date: 20110831
  Serious: Yes (Hospitalization, Other)
  Sender: FDA-Public Use
  Company Number: 2011MA000624

PATIENT
  Age: 7 Week
  Sex: Male

DRUGS (1)
  1. FEVERALL [Suspect]
     Indication: HERNIA REPAIR
     Route: 054

REACTIONS (3)
  - ACCIDENTAL OVERDOSE [None]
  - ACTIVATED PARTIAL THROMBOPLASTIN TIME PROLONGED [None]
  - DRUG PRESCRIBING ERROR [None]
